FAERS Safety Report 16559274 (Version 1)
Quarter: 2019Q3

REPORT INFORMATION
  Report Type: Report from Study
  Country: US (occurrence: US)
  Receive Date: 20190711
  Receipt Date: 20190711
  Transmission Date: 20191004
  Serious: Yes (Other)
  Sender: FDA-Public Use
  Company Number: PHEH2019US028656

PATIENT
  Sex: Male

DRUGS (1)
  1. ENTRESTO [Suspect]
     Active Substance: SACUBITRIL\VALSARTAN
     Indication: CARDIAC FAILURE
     Route: 048

REACTIONS (8)
  - Nausea [Unknown]
  - Dry mouth [Unknown]
  - Cough [Unknown]
  - Dizziness postural [Unknown]
  - Pain in extremity [Unknown]
  - Atrial fibrillation [Unknown]
  - Dyspnoea [Unknown]
  - Hypotension [Unknown]
